FAERS Safety Report 10407030 (Version 1)
Quarter: 2014Q3

REPORT INFORMATION
  Report Type: Spontaneous
  Country: US (occurrence: None)
  Receive Date: 20140822
  Receipt Date: 20140822
  Transmission Date: 20150326
  Serious: Yes (Other)
  Sender: FDA-Public Use
  Company Number: None

PATIENT
  Age: 32 Year
  Sex: Female
  Weight: 92.53 kg

DRUGS (1)
  1. HUMIRA [Suspect]
     Active Substance: ADALIMUMAB
     Indication: HIDRADENITIS
     Dosage: 1 EVERY 14 DAYS SUBCUTANEOUS
     Route: 058
     Dates: start: 20140510, end: 20140726

REACTIONS (5)
  - Breast discharge [None]
  - Menorrhagia [None]
  - Ventricular extrasystoles [None]
  - Endometrial ablation [None]
  - Menstruation irregular [None]

NARRATIVE: CASE EVENT DATE: 20140730
